FAERS Safety Report 12667128 (Version 1)
Quarter: 2016Q3

REPORT INFORMATION
  Report Type: Spontaneous
  Country: US (occurrence: US)
  Receive Date: 20160819
  Receipt Date: 20160819
  Transmission Date: 20161109
  Serious: No
  Sender: FDA-Public Use
  Company Number: US-JNJFOC-20160801560

PATIENT
  Age: 63 Year
  Sex: Male

DRUGS (10)
  1. DULCOLAX NOS [Concomitant]
     Active Substance: BISACODYL OR DOCUSATE SODIUM
     Route: 065
  2. CALCIUM 600+D3 [Concomitant]
     Active Substance: CALCIUM CARBONATE\VITAMIN D
     Route: 065
  3. LACTULOSE. [Concomitant]
     Active Substance: LACTULOSE
     Route: 065
  4. ZYTIGA [Suspect]
     Active Substance: ABIRATERONE ACETATE
     Indication: PROSTATE CANCER
     Route: 048
  5. PANTOPRAZOLE SODIUM. [Concomitant]
     Active Substance: PANTOPRAZOLE SODIUM
     Route: 065
  6. PREDNISONE. [Concomitant]
     Active Substance: PREDNISONE
     Route: 065
  7. MS CONTIN [Concomitant]
     Active Substance: MORPHINE SULFATE
     Route: 065
  8. OXYBUTYNIN CHLORIDE. [Concomitant]
     Active Substance: OXYBUTYNIN CHLORIDE
     Route: 065
  9. AMLODIPINE BESYLATE. [Concomitant]
     Active Substance: AMLODIPINE BESYLATE
     Route: 065
  10. IRON [Concomitant]
     Active Substance: IRON
     Route: 065

REACTIONS (5)
  - Constipation [Unknown]
  - Dyspnoea [Unknown]
  - Dizziness [Unknown]
  - Nausea [Unknown]
  - Asthenia [Unknown]
